FAERS Safety Report 9320931 (Version 2)
Quarter: 2013Q3

REPORT INFORMATION
  Report Type: Report from Study
  Country: US (occurrence: US)
  Receive Date: 20130531
  Receipt Date: 20130725
  Transmission Date: 20140515
  Serious: Yes (Death)
  Sender: FDA-Public Use
  Company Number: PHEH2013US011822

PATIENT
  Age: 51 Year
  Sex: Male
  Weight: 73 kg

DRUGS (2)
  1. ZOMETA [Suspect]
     Dosage: 4 MG, PER 5ML
  2. ZOMETA [Suspect]
     Dosage: 4 MG, PER 5ML
     Dates: start: 20121121

REACTIONS (1)
  - Death [Fatal]
